FAERS Safety Report 8858500 (Version 2)
Quarter: 2012Q4

REPORT INFORMATION
  Report Type: 
  Country: US (occurrence: US)
  Receive Date: 20121024
  Receipt Date: 20121119
  Transmission Date: 20130627
  Serious: Yes (Hospitalization)
  Sender: FDA-Public Use
  Company Number: US-ROCHE-1148446

PATIENT
  Age: 81 Year
  Sex: Male

DRUGS (1)
  1. XELODA [Suspect]
     Indication: COLON CANCER
     Route: 048
     Dates: start: 20121016, end: 20121018

REACTIONS (3)
  - Constipation [Not Recovered/Not Resolved]
  - Faecaloma [Not Recovered/Not Resolved]
  - Tumour excision [Recovered/Resolved]
